FAERS Safety Report 25088852 (Version 1)
Quarter: 2025Q1

REPORT INFORMATION
  Report Type: Spontaneous
  Country: ES (occurrence: ES)
  Receive Date: 20250318
  Receipt Date: 20250318
  Transmission Date: 20250409
  Serious: Yes (Life-Threatening, Hospitalization)
  Sender: TEVA
  Company Number: None

PATIENT
  Age: 52 Year
  Sex: Female

DRUGS (6)
  1. VENLAFAXINE [Interacting]
     Active Substance: VENLAFAXINE HYDROCHLORIDE
     Indication: Depression
     Route: 048
     Dates: start: 20241118, end: 20241118
  2. LORMETAZEPAM [Interacting]
     Active Substance: LORMETAZEPAM
     Indication: Anxiety disorder
     Route: 048
     Dates: start: 20241118, end: 20241118
  3. IBUPROFEN [Interacting]
     Active Substance: IBUPROFEN
     Indication: Pain
     Route: 048
     Dates: start: 20241118, end: 20241118
  4. CLONAZEPAM [Interacting]
     Active Substance: CLONAZEPAM
     Indication: Anxiety disorder
     Route: 048
     Dates: start: 20241118, end: 20241118
  5. LYRICA [Interacting]
     Active Substance: PREGABALIN
     Indication: Alcohol use disorder
     Route: 048
     Dates: start: 20241118, end: 20241118
  6. FLUOXETINE [Interacting]
     Active Substance: FLUOXETINE HYDROCHLORIDE
     Indication: Anxiety disorder
     Route: 048
     Dates: start: 20241118, end: 20241118

REACTIONS (2)
  - Suicide attempt [Recovered/Resolved]
  - Depressed level of consciousness [Recovered/Resolved]

NARRATIVE: CASE EVENT DATE: 20241118
